FAERS Safety Report 8733588 (Version 2)
Quarter: 2012Q4

REPORT INFORMATION
  Report Type: 
  Country: NL (occurrence: NL)
  Receive Date: 20120821
  Receipt Date: 20120829
  Transmission Date: 20130627
  Serious: Yes (Other)
  Sender: FDA-Public Use
  Company Number: NL-PFIZER INC-2012201470

PATIENT
  Age: 35 Year
  Sex: Female

DRUGS (2)
  1. ATORVASTATIN PFIZER [Suspect]
     Dosage: 20 mg, UNK
     Dates: start: 20120806
  2. NEORAL [Concomitant]
     Dosage: UNK

REACTIONS (1)
  - Herpes zoster [Unknown]
